FAERS Safety Report 5586457-1 (Version None)
Quarter: 2008Q1

REPORT INFORMATION
  Report Type: 
  Country: None (occurrence: None)
  Receive Date: 20080110
  Receipt Date: 20071230
  Transmission Date: 20080703
  Serious: Yes (Hospitalization)
  Sender: FDA-Public Use
  Company Number: IL-AMGEN-US259289

PATIENT
  Age: 81 Year
  Sex: Female

DRUGS (5)
  1. ENBREL [Suspect]
     Indication: RHEUMATOID ARTHRITIS
     Route: 058
     Dates: start: 20071201, end: 20071201
  2. IMIPENEM [Suspect]
  3. PLAQUENIL [Concomitant]
  4. ILOMEDIN [Concomitant]
  5. SULFASALAZINE [Concomitant]

REACTIONS (5)
  - CELLULITIS [None]
  - CONVULSION [None]
  - ISCHAEMIA [None]
  - NERVOUS SYSTEM DISORDER [None]
  - OEDEMA PERIPHERAL [None]
